FAERS Safety Report 19434077 (Version 1)
Quarter: 2021Q2

REPORT INFORMATION
  Report Type: Spontaneous
  Country: CN (occurrence: CN)
  Receive Date: 20210618
  Receipt Date: 20210618
  Transmission Date: 20210717
  Serious: Yes (Other)
  Sender: FDA-Public Use
  Company Number: CN-AMGEN-CHNSP2021093432

PATIENT
  Age: 26 Year
  Sex: Female

DRUGS (3)
  1. APATINIB [Concomitant]
     Active Substance: APATINIB
     Dosage: 500 MILLIGRAM, QD
     Route: 048
  2. CALCIUM + VITAMIN D [CALCIUM CARBONATE;COLECALCIFEROL] [Concomitant]
     Active Substance: CALCIUM CARBONATE\CHOLECALCIFEROL
     Dosage: UNK
  3. XGEVA [Suspect]
     Active Substance: DENOSUMAB
     Indication: BONE GIANT CELL TUMOUR
     Dosage: 120 MILLIGRAM, QMO (ADDITIONAL DOSES ON DAYS 8 AND 15 OF THE FIRST MONTH)
     Route: 058

REACTIONS (2)
  - Therapy partial responder [Unknown]
  - Metastases to lung [Recovered/Resolved]
